FAERS Safety Report 7934499-0 (Version None)
Quarter: 2011Q4

REPORT INFORMATION
  Report Type: 
  Country: None (occurrence: None)
  Receive Date: 20111122
  Receipt Date: 20111118
  Transmission Date: 20120403
  Serious: Yes (Life-Threatening, Hospitalization)
  Sender: FDA-Public Use
  Company Number: CN-GLAXOSMITHKLINE-Z0012312A

PATIENT
  Sex: Male
  Weight: 81 kg

DRUGS (6)
  1. IRBESARTAN AND HYDROCHLOROTHIAZIDE [Concomitant]
  2. PAZOPANIB [Suspect]
     Indication: RENAL CELL CARCINOMA
     Dosage: 800MG PER DAY
     Route: 048
     Dates: start: 20110805
  3. COZAAR [Concomitant]
  4. DIAMMONIUM GLYCYRRHIZINATE [Concomitant]
  5. AMLODIPINE [Concomitant]
     Indication: HYPERTENSION
     Dosage: 5MG PER DAY
     Route: 048
     Dates: start: 20111008
  6. LOSARTAN POTASSIUM [Concomitant]
     Indication: HYPERTENSION
     Dosage: 5MG SINGLE DOSE
     Route: 048
     Dates: start: 20110923

REACTIONS (1)
  - TUMOUR RUPTURE [None]
